FAERS Safety Report 4285976-8 (Version None)
Quarter: 2004Q1

REPORT INFORMATION
  Report Type: 
  Country: None (occurrence: None)
  Receive Date: 20040204
  Receipt Date: 20040204
  Transmission Date: 20041129
  Serious: Yes (Other)
  Sender: FDA-Public Use
  Company Number: None

PATIENT

DRUGS (2)
  1. FLOXIN OTIC [Suspect]
     Indication: OTORRHOEA
  2. CIPRO HC [Suspect]

REACTIONS (3)
  - OTITIS EXTERNA FUNGAL [None]
  - OTORRHOEA [None]
  - STAPHYLOCOCCAL INFECTION [None]
